FAERS Safety Report 5236694-0 (Version None)
Quarter: 2007Q1

REPORT INFORMATION
  Report Type: 
  Country: None (occurrence: None)
  Receive Date: 20070209
  Receipt Date: 20070129
  Transmission Date: 20070707
  Serious: Yes (Hospitalization)
  Sender: FDA-Public Use
  Company Number: 2007-00231

PATIENT
  Age: 53 Year
  Sex: Male

DRUGS (6)
  1. VELCADE [Suspect]
     Indication: MULTIPLE MYELOMA
     Dosage: 1.30 MG/M2
     Dates: start: 20070117, end: 20070123
  2. DEXAMETHASONE [Concomitant]
  3. OMEPRAL (OMPERAZOLE) [Concomitant]
  4. ALLOPURINOL [Concomitant]
  5. MORPHNE HYDROCHLORIDE (MORPHINE HYDROCHLORIDE) [Concomitant]
  6. OMEGACIN [Concomitant]

REACTIONS (6)
  - ANAEMIA [None]
  - DIALYSIS [None]
  - HEPATIC FUNCTION ABNORMAL [None]
  - PLATELET COUNT DECREASED [None]
  - RENAL IMPAIRMENT [None]
  - TUMOUR LYSIS SYNDROME [None]
